FAERS Safety Report 15561825 (Version 1)
Quarter: 2018Q4

REPORT INFORMATION
  Report Type: Spontaneous
  Country: US (occurrence: US)
  Receive Date: 20181029
  Receipt Date: 20181029
  Transmission Date: 20190205
  Serious: Yes (Other)
  Sender: FDA-Public Use
  Company Number: None

PATIENT
  Age: 64 Year
  Sex: Female
  Weight: 74.25 kg

DRUGS (2)
  1. MULTIVITAMINS [Concomitant]
     Active Substance: VITAMINS
  2. MYRBETRIQ [Suspect]
     Active Substance: MIRABEGRON
     Indication: INCONTINENCE
     Dosage: ?          QUANTITY:1 TABLET(S);?
     Route: 048
     Dates: start: 20180709, end: 20180822

REACTIONS (1)
  - Alopecia [None]

NARRATIVE: CASE EVENT DATE: 20180709
